FAERS Safety Report 9737007 (Version 2)
Quarter: 2015Q3

REPORT INFORMATION
  Report Type: Spontaneous
  Country: US (occurrence: US)
  Receive Date: 20131206
  Receipt Date: 20150804
  Transmission Date: 20151125
  Serious: No
  Sender: FDA-Public Use
  Company Number: US-GILEAD-2009-0023132

PATIENT
  Age: 72 Year
  Sex: Female

DRUGS (12)
  1. COUMADIN [Concomitant]
     Active Substance: WARFARIN SODIUM
  2. PRAZOSIN [Concomitant]
     Active Substance: PRAZOSIN
  3. COREG [Concomitant]
     Active Substance: CARVEDILOL
  4. VERAMYST [Concomitant]
     Active Substance: FLUTICASONE FUROATE
  5. LEVOTHYROXINE. [Concomitant]
     Active Substance: LEVOTHYROXINE
  6. POTASSIUM [Concomitant]
     Active Substance: POTASSIUM
  7. AMIODARONE [Concomitant]
     Active Substance: AMIODARONE
  8. PREDNISONE. [Concomitant]
     Active Substance: PREDNISONE
  9. ADVAIR HFA [Concomitant]
     Active Substance: FLUTICASONE PROPIONATE\SALMETEROL XINAFOATE
  10. LETAIRIS [Suspect]
     Active Substance: AMBRISENTAN
     Indication: PULMONARY ARTERIAL HYPERTENSION
     Route: 048
     Dates: start: 20090430
  11. SPIRIVA [Concomitant]
     Active Substance: TIOTROPIUM BROMIDE MONOHYDRATE
  12. ALLOPURINOL. [Concomitant]
     Active Substance: ALLOPURINOL

REACTIONS (2)
  - Oedema peripheral [Recovered/Resolved]
  - Weight increased [Recovered/Resolved]
